FAERS Safety Report 5632898-3 (Version None)
Quarter: 2008Q1

REPORT INFORMATION
  Report Type: 
  Country: None (occurrence: None)
  Receive Date: 20080221
  Receipt Date: 20080208
  Transmission Date: 20080703
  Serious: Yes (Death)
  Sender: FDA-Public Use
  Company Number: US-AMGEN-QUU264636

PATIENT
  Sex: Male

DRUGS (4)
  1. NEULASTA [Suspect]
     Indication: CHEMOTHERAPY
     Route: 065
     Dates: start: 20070223, end: 20070301
  2. CARBOPLATIN [Concomitant]
  3. PACLITAXEL [Concomitant]
  4. PROCRIT [Concomitant]

REACTIONS (1)
  - LUNG CANCER METASTATIC [None]
